FAERS Safety Report 7024914-1 (Version None)
Quarter: 2010Q4

REPORT INFORMATION
  Report Type: 
  Country: None (occurrence: None)
  Receive Date: 20101001
  Receipt Date: 20100923
  Transmission Date: 20110411
  Serious: Yes (Hospitalization)
  Sender: FDA-Public Use
  Company Number: DE-PFIZER INC-2010112230

PATIENT
  Age: 72 Year
  Sex: Male

DRUGS (6)
  1. SUTENT [Suspect]
     Indication: RENAL CELL CARCINOMA
     Dosage: 50 MG, 1X/DAY
     Dates: start: 20100310
  2. ASPIRIN [Concomitant]
     Dosage: 100 MG, 1X/DAY
  3. ISOSORBIDE MONONITRATE [Concomitant]
     Dosage: UNK
     Dates: start: 19950101
  4. CALCIUM CARBONATE/COLECALCIFEROL [Concomitant]
     Dosage: 500 MG, 1X/DAY
     Dates: start: 20060909
  5. METHOTREXATE [Concomitant]
     Dosage: 15 MG, WEEKLY
     Dates: start: 20070401
  6. FOLINIC ACID [Concomitant]
     Dosage: 5 MG, TWO TIMES PER WEEK
     Dates: start: 20070401

REACTIONS (2)
  - GENERAL PHYSICAL HEALTH DETERIORATION [None]
  - VOMITING [None]
